FAERS Safety Report 13587383 (Version 1)
Quarter: 2017Q2

REPORT INFORMATION
  Report Type: Spontaneous
  Country: US (occurrence: US)
  Receive Date: 20170526
  Receipt Date: 20170526
  Transmission Date: 20170830
  Serious: Yes (Other)
  Sender: FDA-Public Use
  Company Number: GXBR2017US001781

PATIENT
  Sex: Female

DRUGS (1)
  1. AMOXICILLIN AND CLAVULANATE POTASSIUM TABLETS USP [Suspect]
     Active Substance: AMOXICILLIN\CLAVULANATE POTASSIUM
     Indication: BACTERIAL INFECTION
     Dosage: 875/125MG, UNK
     Route: 048

REACTIONS (1)
  - Coeliac disease [Unknown]
